FAERS Safety Report 19838373 (Version 1)
Quarter: 2021Q3

REPORT INFORMATION
  Report Type: Spontaneous
  Country: US (occurrence: US)
  Receive Date: 20210915
  Receipt Date: 20210915
  Transmission Date: 20211014
  Serious: Yes (Death, Other)
  Sender: FDA-Public Use
  Company Number: US-PERRIGO-21US018680

PATIENT
  Age: 62 Year
  Sex: Male

DRUGS (1)
  1. RANITIDINE HYDROCHLORIDE (156) [Suspect]
     Active Substance: RANITIDINE HYDROCHLORIDE
     Indication: GASTROOESOPHAGEAL REFLUX DISEASE
     Dosage: DOSE FREQUENCY: DAILY ? AMOUNT DEPENDED UPON DIET 2X PER DAY FOR 75MG
     Route: 048
     Dates: start: 200001, end: 202001

REACTIONS (3)
  - Gastrointestinal carcinoma [Fatal]
  - Prostate cancer [Fatal]
  - Colorectal cancer [Fatal]

NARRATIVE: CASE EVENT DATE: 20130101
